FAERS Safety Report 8017086-8 (Version None)
Quarter: 2012Q1

REPORT INFORMATION
  Report Type: 
  Country: None (occurrence: None)
  Receive Date: 20120102
  Receipt Date: 20111229
  Transmission Date: 20120608
  Serious: Yes (Other)
  Sender: FDA-Public Use
  Company Number: PHHY2011CL113414

PATIENT
  Age: 61 Year
  Sex: Female

DRUGS (4)
  1. ZOLEDRONOC ACID [Suspect]
     Indication: OSTEOPOROSIS
     Dosage: 5 MG, UNK
     Route: 042
     Dates: start: 20101223
  2. GLAFORNIL [Concomitant]
     Dosage: UNK UKN, UNK
  3. FAMOTIDINE [Concomitant]
     Dosage: UNK UKN, UNK
  4. CELEBR [Concomitant]
     Dosage: UNK UKN, UNK

REACTIONS (1)
  - CHOLELITHIASIS [None]
